FAERS Safety Report 18031044 (Version 2)
Quarter: 2020Q3

REPORT INFORMATION
  Report Type: Spontaneous
  Country: US (occurrence: US)
  Receive Date: 20200715
  Receipt Date: 20200811
  Transmission Date: 20201103
  Serious: Yes (Other)
  Sender: FDA-Public Use
  Company Number: US-CELLTRION INC.-2020US024291

PATIENT

DRUGS (2)
  1. INFLECTRA [Suspect]
     Active Substance: INFLIXIMAB-DYYB
     Dosage: 5MG/KG (ABOUT 200MG, BY INFUSION)
     Route: 065
     Dates: start: 20200619
  2. INFLECTRA [Suspect]
     Active Substance: INFLIXIMAB-DYYB
     Indication: CROHN^S DISEASE
     Dosage: 5MG/KG (ABOUT 200MG, BY INFUSION)
     Route: 065
     Dates: start: 20200605

REACTIONS (4)
  - Arthralgia [Not Recovered/Not Resolved]
  - Underdose [Unknown]
  - Erythema [Unknown]
  - Dermatitis acneiform [Not Recovered/Not Resolved]
